FAERS Safety Report 8862730 (Version 1)
Quarter: 2012Q4

REPORT INFORMATION
  Report Type: 
  Country: US (occurrence: US)
  Receive Date: 20121026
  Receipt Date: 20121026
  Transmission Date: 20130627
  Serious: Yes (Other)
  Sender: FDA-Public Use
  Company Number: PHEH2012US020030

PATIENT
  Sex: Female

DRUGS (9)
  1. GILENYA [Suspect]
     Indication: MULTIPLE SCLEROSIS
     Dosage: 0.5 mg, QD
     Route: 048
  2. CRESTOR [Concomitant]
     Indication: HYPERLIPIDAEMIA
     Dosage: 10 mg, QD
     Route: 048
  3. ALTACE [Concomitant]
     Dosage: 10 mg, QD
     Route: 048
  4. AVONEX [Concomitant]
     Route: 048
  5. VITAMIN D [Concomitant]
  6. VITAMIN B COMPLEX [Concomitant]
  7. PROVIGIL [Concomitant]
     Indication: FATIGUE
     Dosage: 200 to 300 mg, QD
     Route: 048
  8. DETROL [Concomitant]
     Indication: HYPERTONIC BLADDER
     Route: 048
  9. ANTIHYPERTENSIVE DRUGS [Concomitant]
     Dosage: UNK UKN, UNK

REACTIONS (3)
  - Visual impairment [Not Recovered/Not Resolved]
  - Visual acuity reduced [Unknown]
  - Vision blurred [Unknown]
